FAERS Safety Report 5465973-7 (Version None)
Quarter: 2007Q3

REPORT INFORMATION
  Report Type: 
  Country: None (occurrence: None)
  Receive Date: 20070924
  Receipt Date: 20070917
  Transmission Date: 20080115
  Serious: Yes (Congenital Anomaly)
  Sender: FDA-Public Use
  Company Number: FR-ROXANE LABORATORIES, INC-2007-BP-21531RO

PATIENT

DRUGS (6)
  1. CYCLOPHOSPHAMIDE [Suspect]
     Dosage: PREVIOUS MATERAL EXPOSURE
     Dates: start: 20030101
  2. CYCLOPHOSPHAMIDE [Suspect]
     Route: 042
     Dates: start: 20050101
  3. PREDNISONE [Suspect]
     Route: 064
  4. MYCOPHENOLATE MOFETIL [Suspect]
     Route: 064
  5. HYDROXYCHLOROQUINE SULFATE [Suspect]
     Route: 064
  6. PERINDOPRIL ERBUMINE [Suspect]
     Route: 064

REACTIONS (7)
  - ANOTIA [None]
  - CONGENITAL AORTIC ANOMALY [None]
  - CONGENITAL NAIL DISORDER [None]
  - HEARING IMPAIRED [None]
  - KIDNEY MALFORMATION [None]
  - POLYDACTYLY [None]
  - VENTRICULAR SEPTAL DEFECT [None]
